FAERS Safety Report 9690283 (Version 2)
Quarter: 2013Q4

REPORT INFORMATION
  Report Type: Spontaneous
  Country: US (occurrence: US)
  Receive Date: 20131115
  Receipt Date: 20131230
  Transmission Date: 20140711
  Serious: No
  Sender: FDA-Public Use
  Company Number: US-009507513-1311USA005424

PATIENT
  Age: 14 Year
  Sex: Male

DRUGS (2)
  1. PROVENTIL [Suspect]
     Dosage: 2 PUFFS Q4-6 HRS PRN
     Route: 055
     Dates: start: 20131108, end: 2013
  2. PROVENTIL [Suspect]
     Dosage: 2 PUFFS Q4-6 HRS PRN
     Route: 055
     Dates: start: 2013

REACTIONS (3)
  - Drug dose omission [Unknown]
  - Product quality issue [Unknown]
  - No adverse event [Unknown]
